FAERS Safety Report 22779434 (Version 2)
Quarter: 2023Q4

REPORT INFORMATION
  Report Type: Spontaneous
  Country: US (occurrence: US)
  Receive Date: 20230802
  Receipt Date: 20231013
  Transmission Date: 20240110
  Serious: No
  Sender: FDA-Public Use
  Company Number: US-BAUSCHBL-2023BNL006331

PATIENT
  Sex: Female

DRUGS (1)
  1. LOTEMAX SM [Suspect]
     Active Substance: LOTEPREDNOL ETABONATE
     Indication: Product used for unknown indication
     Route: 065

REACTIONS (5)
  - Eye irritation [Unknown]
  - Eye pain [Unknown]
  - Product physical consistency issue [Unknown]
  - Liquid product physical issue [Unknown]
  - Poor quality product administered [Unknown]
